FAERS Safety Report 20499485 (Version 1)
Quarter: 2022Q1

REPORT INFORMATION
  Report Type: Spontaneous
  Country: CN (occurrence: CN)
  Receive Date: 20220222
  Receipt Date: 20220222
  Transmission Date: 20220423
  Serious: Yes (Death, Other)
  Sender: FDA-Public Use
  Company Number: CN-AMGEN-CHNSP2022028190

PATIENT

DRUGS (2)
  1. FILGRASTIM [Suspect]
     Active Substance: FILGRASTIM
     Indication: Haematopoietic stem cell mobilisation
     Route: 065
  2. FILGRASTIM [Suspect]
     Active Substance: FILGRASTIM
     Indication: Off label use

REACTIONS (11)
  - Chronic graft versus host disease [Fatal]
  - Acute graft versus host disease [Fatal]
  - Death [Fatal]
  - Infection [Fatal]
  - Thrombotic microangiopathy [Unknown]
  - Haemorrhage intracranial [Unknown]
  - Lymphoproliferative disorder [Unknown]
  - Transplant dysfunction [Unknown]
  - Delayed engraftment [Unknown]
  - Transplant failure [Unknown]
  - Off label use [Unknown]
